FAERS Safety Report 20731042 (Version 2)
Quarter: 2022Q2

REPORT INFORMATION
  Report Type: Report from Study
  Country: US (occurrence: US)
  Receive Date: 20220420
  Receipt Date: 20220508
  Transmission Date: 20220721
  Serious: Yes (Hospitalization, Other)
  Sender: FDA-Public Use
  Company Number: US-BRISTOL-MYERS SQUIBB COMPANY-2022-018537

PATIENT
  Age: 48 Year
  Sex: Male
  Weight: 85.1 kg

DRUGS (3)
  1. NIVOLUMAB [Suspect]
     Active Substance: NIVOLUMAB
     Indication: Oesophageal adenocarcinoma
     Route: 065
     Dates: start: 20211221, end: 20220104
  2. CARBOPLATIN [Suspect]
     Active Substance: CARBOPLATIN
     Indication: Oesophageal adenocarcinoma
     Route: 065
     Dates: start: 20211221, end: 20220125
  3. PACLITAXEL [Suspect]
     Active Substance: PACLITAXEL
     Indication: Oesophageal adenocarcinoma
     Route: 065
     Dates: start: 20211221, end: 20220125

REACTIONS (6)
  - Lymphocyte count decreased [Recovered/Resolved]
  - White blood cell count decreased [Recovered/Resolved with Sequelae]
  - Weight decreased [Recovering/Resolving]
  - Neutrophil count decreased [Recovered/Resolved]
  - Oesophagitis [Recovering/Resolving]
  - Upper gastrointestinal haemorrhage [Recovering/Resolving]

NARRATIVE: CASE EVENT DATE: 20211228
